FAERS Safety Report 6089044-4 (Version None)
Quarter: 2009Q1

REPORT INFORMATION
  Report Type: 
  Country: None (occurrence: None)
  Receive Date: 20090224
  Receipt Date: 20090218
  Transmission Date: 20090719
  Serious: Yes (Other)
  Sender: FDA-Public Use
  Company Number: B0532057A

PATIENT
  Age: 85 Year
  Sex: Female

DRUGS (6)
  1. SERETIDE [Suspect]
     Indication: ASTHMA
     Dosage: 2PUFF TWICE PER DAY
     Route: 055
     Dates: start: 20030101
  2. VENTOLIN [Suspect]
     Indication: DRUG USE FOR UNKNOWN INDICATION
     Dosage: 100MCG AS REQUIRED
     Route: 055
  3. ASPIRIN [Suspect]
     Dosage: .5TAB PER DAY
     Route: 065
  4. FUROSEMIDE [Suspect]
     Dosage: 20MG PER DAY
     Route: 065
  5. SIMVASTATIN [Suspect]
     Dosage: 40MG PER DAY
     Route: 065
  6. LOVAZA [Suspect]
     Indication: DRUG USE FOR UNKNOWN INDICATION
     Route: 065

REACTIONS (11)
  - ASTHMA [None]
  - CHEST DISCOMFORT [None]
  - COUGH [None]
  - DIARRHOEA [None]
  - DYSPNOEA [None]
  - INCORRECT DOSE ADMINISTERED [None]
  - OEDEMA PERIPHERAL [None]
  - PRODUCTIVE COUGH [None]
  - PRURITUS [None]
  - RESPIRATORY TRACT CONGESTION [None]
  - WHEEZING [None]
